FAERS Safety Report 8283360-3 (Version None)
Quarter: 2012Q2

REPORT INFORMATION
  Report Type: 
  Country: None (occurrence: None)
  Receive Date: 20120413
  Receipt Date: 20120404
  Transmission Date: 20120825
  Serious: Yes (Other)
  Sender: FDA-Public Use
  Company Number: US-BAYER-2012-033839

PATIENT
  Sex: Female

DRUGS (3)
  1. LEVEMIR [Suspect]
  2. ATENOLOL AND CHLORTHALIDONE [Interacting]
  3. ASPIRIN [Interacting]

REACTIONS (2)
  - INJECTION SITE MASS [None]
  - INJECTION SITE HAEMATOMA [None]
